FAERS Safety Report 5595772-7 (Version None)
Quarter: 2008Q1

REPORT INFORMATION
  Report Type: 
  Country: None (occurrence: None)
  Receive Date: 20080118
  Receipt Date: 20080110
  Transmission Date: 20080703
  Serious: Yes (Hospitalization, Disabling)
  Sender: FDA-Public Use
  Company Number: B0500038A

PATIENT
  Age: 46 Year
  Sex: Female
  Weight: 70 kg

DRUGS (9)
  1. ZYBAN [Suspect]
     Route: 048
     Dates: start: 20070815, end: 20070901
  2. UNKNOWN DRUG [Concomitant]
  3. NASAL SPRAY [Concomitant]
  4. PARACETAMOL [Concomitant]
  5. IBUMETIN [Concomitant]
     Dosage: 600MG AS REQUIRED
  6. SUMATRIPTAN SUCCINATE [Concomitant]
     Dosage: 25MG AS REQUIRED
     Route: 065
  7. STESOLID [Concomitant]
  8. PAMOL [Concomitant]
     Dosage: 1G FOUR TIMES PER DAY
     Route: 065
  9. PRIMPERAN INJ [Concomitant]

REACTIONS (13)
  - DEAFNESS UNILATERAL [None]
  - DEPRESSION [None]
  - FATIGUE [None]
  - HEADACHE [None]
  - INTRAOCULAR PRESSURE TEST [None]
  - MIGRAINE [None]
  - MOOD ALTERED [None]
  - NAUSEA [None]
  - PHONOPHOBIA [None]
  - PHOTOPHOBIA [None]
  - PUPILLARY DISORDER [None]
  - TINNITUS [None]
  - VOMITING [None]
